FAERS Safety Report 5956676-0 (Version None)
Quarter: 2008Q4

REPORT INFORMATION
  Report Type: 
  Country: None (occurrence: None)
  Receive Date: 20081117
  Receipt Date: 20081117
  Transmission Date: 20090506
  Serious: Yes (Disabling)
  Sender: FDA-Public Use
  Company Number: None

PATIENT
  Age: 20 Year
  Sex: Male
  Weight: 72.5755 kg

DRUGS (1)
  1. DOXYCYCLINE HYCLATE [Suspect]
     Indication: ACNE
     Dosage: 50 MG 1 CAP TWICE DAY ORAL
     Route: 048
     Dates: start: 20070216, end: 20070225

REACTIONS (3)
  - BONE MARROW DISORDER [None]
  - NEUTROPENIA [None]
  - SKIN INFECTION [None]
